FAERS Safety Report 10434674 (Version 1)
Quarter: 2014Q2

REPORT INFORMATION
  Report Type: Spontaneous
  Country: US (occurrence: None)
  Receive Date: 20140514
  Receipt Date: 20140514
  Transmission Date: 20141212
  Serious: Yes (Other)
  Sender: FDA-Public Use
  Company Number: 080538U

PATIENT
  Age: 35 Year
  Sex: Female

DRUGS (1)
  1. CIMZIA [Suspect]
     Indication: CROHN^S DISEASE
     Dates: start: 201212

REACTIONS (6)
  - Anal fistula [None]
  - Nausea [None]
  - Vomiting [None]
  - Pain [None]
  - Abdominal pain upper [None]
  - Headache [None]
